FAERS Safety Report 4917931-6 (Version None)
Quarter: 2006Q1

REPORT INFORMATION
  Report Type: 
  Country: None (occurrence: None)
  Receive Date: 20060221
  Receipt Date: 20051003
  Transmission Date: 20060701
  Serious: Yes (Other)
  Sender: FDA-Public Use
  Company Number: US-MERCK-0510USA02699

PATIENT
  Age: 53 Year
  Sex: Female

DRUGS (1)
  1. VIOXX [Suspect]
     Route: 048
     Dates: start: 20040315, end: 20040910

REACTIONS (2)
  - EMOTIONAL DISTRESS [None]
  - ISCHAEMIC STROKE [None]
